FAERS Safety Report 9902276 (Version 2)
Quarter: 2014Q1

REPORT INFORMATION
  Report Type: Spontaneous
  Country: DE (occurrence: DE)
  Receive Date: 20140217
  Receipt Date: 20140310
  Transmission Date: 20141002
  Serious: Yes (Hospitalization, Other)
  Sender: FDA-Public Use
  Company Number: DE-JNJFOC-20140206717

PATIENT
  Age: 54 Year
  Sex: Male
  Weight: 74 kg

DRUGS (3)
  1. REMICADE [Suspect]
     Indication: COLITIS ULCERATIVE
     Route: 042
     Dates: start: 20130813
  2. REMICADE [Suspect]
     Indication: COLITIS ULCERATIVE
     Route: 042
     Dates: start: 20130730
  3. INNOHEP [Concomitant]
     Indication: ANTICOAGULANT THERAPY
     Route: 065

REACTIONS (8)
  - Procedural complication [Unknown]
  - Colitis ulcerative [Recovering/Resolving]
  - Atrial thrombosis [Unknown]
  - Pulmonary embolism [Unknown]
  - Ileus paralytic [Unknown]
  - Impaired healing [Unknown]
  - Infection [Unknown]
  - Drug ineffective [Unknown]
